FAERS Safety Report 10163904 (Version 1)
Quarter: 2014Q2

REPORT INFORMATION
  Report Type: Report from Study
  Country: RO (occurrence: RO)
  Receive Date: 20140510
  Receipt Date: 20140510
  Transmission Date: 20141212
  Serious: Yes (Congenital Anomaly, Other)
  Sender: FDA-Public Use
  Company Number: RO-ROCHE-1392083

PATIENT
  Sex: 0

DRUGS (3)
  1. SAQUINAVIR [Suspect]
     Indication: PRODUCT USED FOR UNKNOWN INDICATION
     Route: 064
  2. LAMIVUDINE [Suspect]
     Indication: PRODUCT USED FOR UNKNOWN INDICATION
     Route: 064
  3. RITONAVIR [Suspect]
     Indication: PRODUCT USED FOR UNKNOWN INDICATION
     Route: 064

REACTIONS (17)
  - Congenital anomaly [Unknown]
  - Foetal arrhythmia [Unknown]
  - Anaemia [Unknown]
  - Premature baby [Unknown]
  - Gastroenteritis [Unknown]
  - Urinary tract infection [Unknown]
  - Pyelonephritis [Unknown]
  - Neonatal respiratory distress syndrome [Unknown]
  - Bronchiolitis [Unknown]
  - Intrauterine infection [Unknown]
  - Ear infection [Unknown]
  - Congenital cytomegalovirus infection [Unknown]
  - Gastrointestinal disorder [Unknown]
  - Congenital infection [Unknown]
  - Jaundice acholuric [Unknown]
  - Respiratory distress [Unknown]
  - Foetal exposure during pregnancy [Unknown]
